FAERS Safety Report 14580504 (Version 1)
Quarter: 2018Q1

REPORT INFORMATION
  Report Type: Spontaneous
  Country: US (occurrence: US)
  Receive Date: 20180228
  Receipt Date: 20180228
  Transmission Date: 20180509
  Serious: No
  Sender: FDA-Public Use
  Company Number: US-INSYS THERAPEUTICS, INC-INS201706-000385

PATIENT
  Sex: Male

DRUGS (7)
  1. SUBSYS [Suspect]
     Active Substance: FENTANYL
     Route: 060
  2. SUBSYS [Suspect]
     Active Substance: FENTANYL
     Indication: BREAKTHROUGH PAIN
     Route: 060
  3. FENTORA [Concomitant]
     Active Substance: FENTANYL CITRATE
     Indication: PAIN
  4. VALIUM [Concomitant]
     Active Substance: DIAZEPAM
     Indication: MUSCLE SPASMS
  5. DILAUDID [Concomitant]
     Active Substance: HYDROMORPHONE HYDROCHLORIDE
     Indication: PAIN
  6. CLONIDINE. [Concomitant]
     Active Substance: CLONIDINE
     Indication: PAIN
  7. ACTIQ [Concomitant]
     Active Substance: FENTANYL CITRATE
     Indication: PAIN

REACTIONS (3)
  - Drug tolerance [Unknown]
  - Incoherent [Unknown]
  - Accidental exposure to product [Unknown]
